FAERS Safety Report 25488174 (Version 1)
Quarter: 2025Q2

REPORT INFORMATION
  Report Type: Spontaneous
  Country: CA (occurrence: None)
  Receive Date: 20250627
  Receipt Date: 20250627
  Transmission Date: 20250717
  Serious: Yes (Other)
  Sender: ORION
  Company Number: CA-PFIZER INC-202500127297

PATIENT
  Age: 3 Year
  Sex: Male

DRUGS (3)
  1. METHOTREXATE [Suspect]
     Active Substance: METHOTREXATE
     Indication: B-cell type acute leukaemia
  2. METHOTREXATE [Suspect]
     Active Substance: METHOTREXATE
  3. METHOTREXATE [Suspect]
     Active Substance: METHOTREXATE

REACTIONS (7)
  - Aggression [Unknown]
  - Atonic seizures [Unknown]
  - Confusional state [Unknown]
  - Lennox-Gastaut syndrome [Unknown]
  - Neurotoxicity [Unknown]
  - Petit mal epilepsy [Unknown]
  - Tonic convulsion [Unknown]
